FAERS Safety Report 5658114-4 (Version None)
Quarter: 2008Q1

REPORT INFORMATION
  Report Type: 
  Country: None (occurrence: None)
  Receive Date: 20080310
  Receipt Date: 20061222
  Transmission Date: 20080703
  Serious: No
  Sender: FDA-Public Use
  Company Number: US-BAYER-200615093BCC

PATIENT
  Age: 41 Year
  Sex: Female
  Weight: 57 kg

DRUGS (5)
  1. ALEVE [Suspect]
     Indication: PAIN
     Dosage: UNIT DOSE: 220 MG
     Route: 048
  2. THREE ALCOHOLIC BEVERAGES [Suspect]
  3. EXCEDRIN [Suspect]
  4. XANAX [Suspect]
  5. PLAQUENIL [Concomitant]

REACTIONS (3)
  - HYPERSENSITIVITY [None]
  - PRURITUS [None]
  - URTICARIA [None]
